FAERS Safety Report 7754299-4 (Version None)
Quarter: 2011Q3

REPORT INFORMATION
  Report Type: 
  Country: None (occurrence: None)
  Receive Date: 20110915
  Receipt Date: 20110818
  Transmission Date: 20111222
  Serious: Yes (Other)
  Sender: FDA-Public Use
  Company Number: US-BAYER-2011-076822

PATIENT
  Sex: Female

DRUGS (2)
  1. ALEVE (CAPLET) [Suspect]
     Indication: ANALGESIC THERAPY
     Dosage: 660 MG, ONCE
     Dates: start: 20110816
  2. IBUPROFEN [Concomitant]
     Indication: ANALGESIC THERAPY
     Dosage: 3 DF, ONCE
     Dates: start: 20110816

REACTIONS (5)
  - FACIAL PAIN [None]
  - HYPERSENSITIVITY [None]
  - URTICARIA [None]
  - SWELLING FACE [None]
  - EYE SWELLING [None]
